FAERS Safety Report 9455853 (Version 1)
Quarter: 2013Q3

REPORT INFORMATION
  Report Type: Spontaneous
  Country: DE (occurrence: DE)
  Receive Date: 20130813
  Receipt Date: 20130813
  Transmission Date: 20140515
  Serious: Yes (Other)
  Sender: FDA-Public Use
  Company Number: DE-MERCK-1308DEU002149

PATIENT
  Age: 54 Year
  Sex: Female

DRUGS (1)
  1. TRUSOPT-S 20MG/ML AUGENTROPFEN IM EINZELDOSISBEHALTNIS [Suspect]
     Dosage: UNK
     Route: 047
     Dates: start: 2010

REACTIONS (2)
  - Hearing impaired [Not Recovered/Not Resolved]
  - Tinnitus [Not Recovered/Not Resolved]
